FAERS Safety Report 21207854 (Version 10)
Quarter: 2025Q4

REPORT INFORMATION
  Report Type: Report from Study
  Country: US (occurrence: US)
  Receive Date: 20220812
  Receipt Date: 20251218
  Transmission Date: 20260117
  Serious: Yes (Other)
  Sender: PFIZER
  Company Number: US-PFIZER INC-202101377241

PATIENT
  Age: 78 Year
  Sex: Female
  Weight: 73.923 kg

DRUGS (4)
  1. IBRANCE [Suspect]
     Active Substance: PALBOCICLIB
     Indication: Breast cancer metastatic
     Dosage: 100 MG, CYCLIC (1 TABLET DAILY FOR 7 DAYS THEN STOP FOR 7 DAYS AND REPEAT 1 WEEK)
     Route: 048
  2. IBRANCE [Suspect]
     Active Substance: PALBOCICLIB
     Dosage: 75MG, CYCLIC (1 TABLET DAILY FOR 7 DAYS THEN STOP FOR 7 DAYS, REPEAT 1 WEEK ON AND OFF)/BY MOUTH
     Route: 048
     Dates: start: 20230227
  3. IBRANCE [Suspect]
     Active Substance: PALBOCICLIB
     Dosage: UNK
     Dates: start: 20250828, end: 20250901
  4. IBRANCE [Suspect]
     Active Substance: PALBOCICLIB
     Dosage: UNK
     Dates: start: 20251005, end: 20251012

REACTIONS (3)
  - Cataract [Recovered/Resolved]
  - Off label use [Unknown]
  - Product use issue [Unknown]

NARRATIVE: CASE EVENT DATE: 20250922
